FAERS Safety Report 16568547 (Version 1)
Quarter: 2019Q3

REPORT INFORMATION
  Report Type: Spontaneous
  Country: DK (occurrence: DK)
  Receive Date: 20190712
  Receipt Date: 20190712
  Transmission Date: 20191004
  Serious: Yes (Hospitalization)
  Sender: FDA-Public Use
  Company Number: PHHY2019DK160474

PATIENT
  Age: 81 Year
  Sex: Female

DRUGS (10)
  1. ACETYLSALICYLIC ACID [Concomitant]
     Active Substance: ASPIRIN
     Indication: THROMBOSIS PROPHYLAXIS
     Dosage: 75 MG, QD
     Route: 048
     Dates: start: 20181002
  2. KODIMAGNYL IKKE STOPPENDE [Concomitant]
     Indication: PAIN
     Dosage: 1 DF, (EFTER BEHOV MAX 3 GANGE DAGLIGTSTYRKE: 500+9,6 MG)
     Route: 048
     Dates: start: 20170727
  3. PRAMIPEXOLE. [Concomitant]
     Active Substance: PRAMIPEXOLE
     Indication: RESTLESS LEGS SYNDROME
     Dosage: 88 MG, QD
     Route: 048
     Dates: start: 20160512
  4. PANCILLIN [Suspect]
     Active Substance: PENICILLIN V
     Indication: ERYSIPELAS
     Dosage: 3 DF, QD
     Route: 048
     Dates: start: 20190426, end: 20190501
  5. ATORVASTATIN [Concomitant]
     Active Substance: ATORVASTATIN
     Indication: HYPERCHOLESTEROLAEMIA
     Dosage: 20 MG, QD
     Route: 048
     Dates: start: 20181002
  6. POTASSIUM CHLORIDE. [Concomitant]
     Active Substance: POTASSIUM CHLORIDE
     Indication: MINERAL SUPPLEMENTATION
     Dosage: 3000 MG, QD
     Route: 048
     Dates: start: 20170728
  7. IBUPROFEN. [Concomitant]
     Active Substance: IBUPROFEN
     Indication: MYALGIA
     Dosage: 1200 MG, QD
     Route: 048
     Dates: start: 20180820
  8. PARACETAMOL [Concomitant]
     Active Substance: ACETAMINOPHEN
     Indication: PAIN
     Dosage: 1330 MG, UNK (2 TABLETTER EFTER BEHOV, H?JST 3 GANGE DAGLIGT)
     Route: 048
     Dates: start: 20180419
  9. AMILCO [Concomitant]
     Active Substance: AMILORIDE HYDROCHLORIDE\HYDROCHLOROTHIAZIDE
     Indication: DIURETIC THERAPY
     Dosage: 1 DF, QD
     Route: 048
     Dates: start: 20171214
  10. ESTRADIOL + NORETHISTERONE ACETATE [Concomitant]
     Indication: HORMONE THERAPY
     Dosage: 1 DF, QD (1+2 MG)
     Route: 048
     Dates: start: 20170905

REACTIONS (4)
  - Erythema [Recovering/Resolving]
  - Swelling [Recovering/Resolving]
  - Blister [Recovering/Resolving]
  - Pruritus [Recovering/Resolving]

NARRATIVE: CASE EVENT DATE: 201905
